FAERS Safety Report 12871165 (Version 1)
Quarter: 2016Q4

REPORT INFORMATION
  Report Type: Report from Study
  Country: None (occurrence: IT)
  Receive Date: 20161020
  Receipt Date: 20161020
  Transmission Date: 20170207
  Serious: Yes (Death, Other)
  Sender: FDA-Public Use
  Company Number: IT-ABBVIE-16P-083-1758636-00

PATIENT
  Sex: Male
  Weight: 63 kg

DRUGS (1)
  1. DUODOPA [Suspect]
     Active Substance: CARBIDOPA\LEVODOPA
     Indication: PARKINSON^S DISEASE
     Dosage: MD 7 (+3), CR 4.6, ED 2.0
     Route: 050
     Dates: start: 20160808, end: 20161010

REACTIONS (1)
  - Pneumonia [Fatal]
